FAERS Safety Report 4690311-7 (Version None)
Quarter: 2005Q2

REPORT INFORMATION
  Report Type: 
  Country: None (occurrence: None)
  Receive Date: 20050615
  Receipt Date: 20050310
  Transmission Date: 20051028
  Serious: Yes (Hospitalization)
  Sender: FDA-Public Use
  Company Number: FR-MERCK-0503FRA00033

PATIENT
  Age: 86 Year
  Sex: Male
  Weight: 89 kg

DRUGS (8)
  1. VIOXX [Suspect]
     Route: 048
     Dates: start: 20041101, end: 20041201
  2. VALPROMIDE [Concomitant]
     Route: 048
  3. TRIPTORELIN ACETATE [Concomitant]
     Route: 048
  4. SERTRALINE HYDROCHLORIDE [Concomitant]
     Route: 065
  5. BICALUTAMIDE [Concomitant]
     Route: 065
  6. RABEPRAZOLE SODIUM [Concomitant]
     Route: 065
  7. OXAZEPAM [Concomitant]
     Route: 065
  8. ZOPICLONE [Concomitant]
     Route: 065

REACTIONS (5)
  - ANTIBODY TEST POSITIVE [None]
  - ERYTHEMA [None]
  - OEDEMA PERIPHERAL [None]
  - PURPURA [None]
  - SKIN LESION [None]
